FAERS Safety Report 8817803 (Version 1)
Quarter: 2012Q4

REPORT INFORMATION
  Report Type: 
  Country: PL (occurrence: PL)
  Receive Date: 20121001
  Receipt Date: 20121001
  Transmission Date: 20130627
  Serious: Yes (Other)
  Sender: FDA-Public Use
  Company Number: PL-SANOFI-AVENTIS-2012SA069951

PATIENT
  Age: 53 Year
  Sex: Male
  Weight: 62 kg

DRUGS (5)
  1. ARAVA [Suspect]
     Indication: SEROPOSITIVE RHEUMATOID ARTHRITIS
     Route: 048
     Dates: end: 20120620
  2. METHYLPREDNISOLONE [Concomitant]
     Dosage: dose:0.004
  3. PANTOPRAZOLE [Concomitant]
     Dosage: dose: 0.02
  4. TRITACE [Concomitant]
     Dosage: dose: 0.01
  5. INDAPAMIDE [Concomitant]

REACTIONS (2)
  - Alanine aminotransferase increased [Recovered/Resolved]
  - Abdominal pain [Recovered/Resolved]
